FAERS Safety Report 8009131 (Version 3)
Quarter: 2012Q4

REPORT INFORMATION
  Report Type: 
  Country: TR (occurrence: TR)
  Receive Date: 20110624
  Receipt Date: 20121214
  Transmission Date: 20130627
  Serious: Yes (Hospitalization, Other)
  Sender: FDA-Public Use
  Company Number: PHHY2011TR52573

PATIENT
  Age: 8 Year
  Sex: Female

DRUGS (1)
  1. CARBAMAZEPINE [Suspect]
     Indication: EPILEPSY
     Route: 062

REACTIONS (17)
  - Drug reaction with eosinophilia and systemic symptoms [Recovered/Resolved]
  - Pyrexia [Recovered/Resolved]
  - Lymphadenopathy [Recovered/Resolved]
  - Rash [Recovered/Resolved]
  - Rash maculo-papular [Recovered/Resolved]
  - Hepatosplenomegaly [Recovered/Resolved]
  - Eosinophil count increased [Recovered/Resolved]
  - Gamma-glutamyltransferase increased [Recovered/Resolved]
  - Skin exfoliation [Recovered/Resolved]
  - Cheilitis [Recovered/Resolved]
  - Face oedema [Recovered/Resolved]
  - Drug hypersensitivity [Recovered/Resolved]
  - Skin test positive [Unknown]
  - C-reactive protein increased [Recovered/Resolved]
  - Acanthosis [Recovered/Resolved]
  - Parakeratosis [Recovered/Resolved]
  - Eczema [Recovered/Resolved]
